FAERS Safety Report 8082902-0 (Version None)
Quarter: 2012Q1

REPORT INFORMATION
  Report Type: 
  Country: None (occurrence: None)
  Receive Date: 20120127
  Receipt Date: 20110126
  Transmission Date: 20120608
  Serious: No
  Sender: FDA-Public Use
  Company Number: US-ABBOTT-11P-163-0700641-00

PATIENT
  Sex: Female
  Weight: 104.42 kg

DRUGS (10)
  1. NEURONTIN [Concomitant]
     Indication: PRODUCT USED FOR UNKNOWN INDICATION
  2. TRIAMTERENE AND HYDROCHLOROTHIAZIDE [Concomitant]
     Indication: PRODUCT USED FOR UNKNOWN INDICATION
  3. ZANAFLEX [Concomitant]
     Indication: PRODUCT USED FOR UNKNOWN INDICATION
  4. KLONOPIN [Concomitant]
     Indication: PRODUCT USED FOR UNKNOWN INDICATION
  5. OXYCODONE HCL [Concomitant]
     Indication: PRODUCT USED FOR UNKNOWN INDICATION
  6. LISINOPRIL [Concomitant]
     Indication: PRODUCT USED FOR UNKNOWN INDICATION
  7. CELEXA [Concomitant]
     Indication: PRODUCT USED FOR UNKNOWN INDICATION
  8. CYTOTEC [Concomitant]
     Indication: PRODUCT USED FOR UNKNOWN INDICATION
  9. HUMIRA [Suspect]
     Indication: CEREBRAL SARCOIDOSIS
     Route: 058
     Dates: start: 20100801
  10. LEVOXYL [Concomitant]
     Indication: HYPOTHYROIDISM

REACTIONS (10)
  - LYMPHADENOPATHY [None]
  - ARTHRALGIA [None]
  - CEREBRAL SARCOIDOSIS [None]
  - HEADACHE [None]
  - NODULE [None]
  - SWELLING FACE [None]
  - NECK PAIN [None]
  - NEUROPATHY PERIPHERAL [None]
  - DRUG DOSE OMISSION [None]
  - FACIAL PAIN [None]
